FAERS Safety Report 7124755-0 (Version None)
Quarter: 2010Q4

REPORT INFORMATION
  Report Type: 
  Country: None (occurrence: None)
  Receive Date: 20101123
  Receipt Date: 20101123
  Transmission Date: 20110411
  Serious: Yes (Hospitalization)
  Sender: FDA-Public Use
  Company Number: None

PATIENT
  Age: 80 Year
  Sex: Male

DRUGS (7)
  1. RASAGALINE 1MG [Suspect]
     Indication: PARKINSON'S DISEASE
     Dosage: 1 MG HS PO
     Route: 048
  2. MIRTAZAPINE [Suspect]
     Indication: DEPRESSION
     Dosage: 15 MG HS PO
     Route: 048
  3. ATIVAN [Concomitant]
  4. SINEMET [Concomitant]
  5. AMARYL [Concomitant]
  6. NAMENDA [Concomitant]
  7. ARICEPT [Concomitant]

REACTIONS (3)
  - DEPRESSED LEVEL OF CONSCIOUSNESS [None]
  - DRUG INTERACTION [None]
  - SEROTONIN SYNDROME [None]
